FAERS Safety Report 14123152 (Version 1)
Quarter: 2017Q4

REPORT INFORMATION
  Report Type: Spontaneous
  Country: US (occurrence: US)
  Receive Date: 20171024
  Receipt Date: 20171024
  Transmission Date: 20180321
  Serious: Yes (Hospitalization, Other)
  Sender: FDA-Public Use
  Company Number: None

PATIENT
  Sex: Female
  Weight: 90 kg

DRUGS (2)
  1. OXYTOCIN. [Suspect]
     Active Substance: OXYTOCIN
     Indication: INDUCED LABOUR
     Dates: start: 20170725, end: 20170725
  2. FENTANYL IV [Suspect]
     Active Substance: FENTANYL
     Indication: INDUCED LABOUR
     Dates: start: 20170725, end: 20170725

REACTIONS (6)
  - Arthralgia [None]
  - Headache [None]
  - Pyrexia [None]
  - Nausea [None]
  - Back pain [None]
  - Heart rate increased [None]

NARRATIVE: CASE EVENT DATE: 20170730
